FAERS Safety Report 9478066 (Version 2)
Quarter: 2013Q3

REPORT INFORMATION
  Report Type: Report from Study
  Country: IN (occurrence: IN)
  Receive Date: 20130827
  Receipt Date: 20130827
  Transmission Date: 20140515
  Serious: Yes (Hospitalization)
  Sender: FDA-Public Use
  Company Number: PHHO2009IN01120

PATIENT
  Age: 58 Year
  Sex: Male
  Weight: 68.8 kg

DRUGS (3)
  1. ALISKIREN [Suspect]
     Indication: CARDIOVASCULAR DISORDER
     Dosage: UNK
     Route: 048
     Dates: start: 20081218
  2. ALISKIREN [Suspect]
     Dosage: UNK
     Dates: start: 20090114, end: 20090115
  3. INSULIN [Concomitant]
     Indication: DIABETES MELLITUS

REACTIONS (4)
  - Hypoglycaemia [Recovering/Resolving]
  - Loss of consciousness [Recovering/Resolving]
  - Drug ineffective [Recovering/Resolving]
  - Concomitant disease progression [Recovering/Resolving]
